FAERS Safety Report 12186830 (Version 1)
Quarter: 2016Q1

REPORT INFORMATION
  Report Type: Spontaneous
  Country: US (occurrence: US)
  Receive Date: 20160317
  Receipt Date: 20160317
  Transmission Date: 20160526
  Serious: Yes (Other)
  Sender: FDA-Public Use
  Company Number: US-PFIZER INC-2016152586

PATIENT
  Age: 78 Year
  Sex: Male
  Weight: 57 kg

DRUGS (4)
  1. VENLAFAXINE HCL [Suspect]
     Active Substance: VENLAFAXINE HYDROCHLORIDE
     Indication: DEPRESSION
     Dosage: 112.5 MG, 1X/DAY, THREE 37.5MG TABLETS IN THE MORNING
  2. HYDRALAZINE [Concomitant]
     Active Substance: HYDRALAZINE HYDROCHLORIDE
     Indication: THYROID DISORDER
     Dosage: UNK, 1X/DAY, EVERY MORNING
  3. FENTANYL. [Concomitant]
     Active Substance: FENTANYL
     Indication: PAIN
     Dosage: 100 UG, TWO PATCHES EVERY 48 HOURS
  4. ASPIRIN /00002701/ [Concomitant]
     Active Substance: ASPIRIN
     Dosage: UNK, LOW DOSE

REACTIONS (7)
  - Drug ineffective [Unknown]
  - Pain [Unknown]
  - Disorientation [Unknown]
  - Drug hypersensitivity [Unknown]
  - Asthenia [Recovering/Resolving]
  - Speech disorder [Unknown]
  - Hypersomnia [Unknown]

NARRATIVE: CASE EVENT DATE: 20160306
